FAERS Safety Report 9383294 (Version 1)
Quarter: 2013Q3

REPORT INFORMATION
  Report Type: Spontaneous
  Country: GB (occurrence: GB)
  Receive Date: 20130704
  Receipt Date: 20130704
  Transmission Date: 20140515
  Serious: Yes (Hospitalization, Disabling)
  Sender: FDA-Public Use
  Company Number: GB-009507513-1307GBR000985

PATIENT
  Age: 100 Year
  Sex: Female
  Weight: 67 kg

DRUGS (8)
  1. FOSAMAX [Suspect]
     Indication: BONE DISORDER
     Dosage: 70 MG, QW
     Route: 048
     Dates: start: 20130511, end: 20130518
  2. ADCAL-D3 [Concomitant]
     Dosage: UNK
  3. CLOPIDOGREL [Concomitant]
     Dosage: UNK
  4. ACETAMINOPHEN (+) DIHYDROCODEINE BITARTRATE [Concomitant]
     Dosage: UNK
  5. INDAPAMIDE [Concomitant]
     Dosage: UNK
  6. OMEPRAZOLE [Concomitant]
     Dosage: UNK
  7. ORAMORPH [Concomitant]
     Dosage: UNK
  8. SENNA [Concomitant]
     Dosage: UNK

REACTIONS (6)
  - Fluid intake reduced [Recovered/Resolved]
  - Lip ulceration [Recovered/Resolved]
  - Mouth ulceration [Recovered/Resolved]
  - Hypophagia [Recovered/Resolved]
  - Pain [Unknown]
  - Tongue ulceration [Recovered/Resolved]
